FAERS Safety Report 5032423-4 (Version None)
Quarter: 2006Q2

REPORT INFORMATION
  Report Type: 
  Country: None (occurrence: None)
  Receive Date: 20060620
  Receipt Date: 20060605
  Transmission Date: 20061013
  Serious: Yes (Death)
  Sender: FDA-Public Use
  Company Number: T200600625

PATIENT
  Age: 44 Year
  Sex: Male

DRUGS (2)
  1. METHADOSE [Suspect]
     Indication: BACK PAIN
     Dosage: 30 MG, BID
     Dates: start: 20060615
  2. DIAZEPAM [Suspect]
     Indication: ANXIETY

REACTIONS (1)
  - DRUG TOXICITY [None]
